FAERS Safety Report 6874367-9 (Version None)
Quarter: 2010Q3

REPORT INFORMATION
  Report Type: 
  Country: None (occurrence: None)
  Receive Date: 20100723
  Receipt Date: 20090528
  Transmission Date: 20110219
  Serious: No
  Sender: FDA-Public Use
  Company Number: US-PFIZER INC-2009197969

PATIENT
  Sex: Female
  Weight: 44.905 kg

DRUGS (3)
  1. CHANTIX [Suspect]
     Indication: SMOKING CESSATION THERAPY
     Dosage: 0.5 MG, 1X/DAY
     Dates: start: 20090403
  2. LISINOPRIL [Concomitant]
     Indication: BLOOD PRESSURE ABNORMAL
     Dosage: UNK
  3. IBUPROFEN [Concomitant]
     Indication: HEADACHE
     Dosage: UNK

REACTIONS (2)
  - LACRIMATION INCREASED [None]
  - PANIC ATTACK [None]
